FAERS Safety Report 10748995 (Version 1)
Quarter: 2015Q1

REPORT INFORMATION
  Report Type: Spontaneous
  Country: US (occurrence: None)
  Receive Date: 20150128
  Receipt Date: 20150128
  Transmission Date: 20150721
  Serious: Yes (Life-Threatening)
  Sender: FDA-Public Use
  Company Number: None

PATIENT
  Age: 40 Year
  Sex: Male
  Weight: 164.2 kg

DRUGS (1)
  1. BRINTELLIX [Suspect]
     Active Substance: VORTIOXETINE HYDROBROMIDE
     Indication: THERAPY CHANGE
     Dosage: 1 5MG TABLET X 2 WEEKS THEN I, ONCE DAILY, TAKEN BY MOUTH
     Route: 048
     Dates: start: 20150123, end: 20150127

REACTIONS (2)
  - Confusional state [None]
  - Anger [None]

NARRATIVE: CASE EVENT DATE: 20150126
